FAERS Safety Report 11404850 (Version 3)
Quarter: 2017Q1

REPORT INFORMATION
  Report Type: Report from Study
  Country: US (occurrence: US)
  Receive Date: 20150821
  Receipt Date: 20170324
  Transmission Date: 20170428
  Serious: No
  Sender: FDA-Public Use
  Company Number: PHHY2015US044122

PATIENT
  Age: 39 Year
  Sex: Female

DRUGS (1)
  1. GILENYA [Suspect]
     Active Substance: FINGOLIMOD HYDROCHLORIDE
     Indication: MULTIPLE SCLEROSIS
     Dosage: UNK UNK, QD
     Route: 048

REACTIONS (5)
  - Nausea [Recovered/Resolved]
  - Neck pain [Recovered/Resolved]
  - Sciatica [Unknown]
  - Headache [Recovered/Resolved]
  - Eye irritation [Unknown]

NARRATIVE: CASE EVENT DATE: 20150312
